FAERS Safety Report 10061117 (Version 2)
Quarter: 2014Q2

REPORT INFORMATION
  Report Type: Report from Study
  Country: AR (occurrence: AR)
  Receive Date: 20140406
  Receipt Date: 20140619
  Transmission Date: 20141212
  Serious: Yes (Hospitalization)
  Sender: FDA-Public Use
  Company Number: AR-US-EMD SERONO, INC.-7279573

PATIENT
  Sex: Male

DRUGS (1)
  1. REBIF [Suspect]
     Indication: MULTIPLE SCLEROSIS
     Dosage: NEW FORMULATION
     Dates: start: 20120831

REACTIONS (2)
  - Central nervous system lesion [Unknown]
  - Multiple sclerosis relapse [Recovering/Resolving]
